FAERS Safety Report 5511510-8 (Version None)
Quarter: 2007Q4

REPORT INFORMATION
  Report Type: 
  Country: None (occurrence: None)
  Receive Date: 20071109
  Receipt Date: 20071101
  Transmission Date: 20080405
  Serious: Yes (Hospitalization)
  Sender: FDA-Public Use
  Company Number: B0493530A

PATIENT
  Age: 60 Year
  Sex: Male
  Weight: 103.9 kg

DRUGS (8)
  1. ROSIGLITAZONE [Suspect]
     Indication: TYPE 2 DIABETES MELLITUS
     Dates: start: 20021011
  2. METFORMIN HCL [Concomitant]
     Indication: TYPE 2 DIABETES MELLITUS
  3. CO-PROXAMOL [Concomitant]
     Indication: ANKYLOSING SPONDYLITIS
     Dosage: 6TAB PER DAY
     Route: 048
     Dates: start: 19910215
  4. FERROUS SULFATE TAB [Concomitant]
     Indication: ANAEMIA
     Dosage: 600MG PER DAY
     Route: 048
     Dates: start: 19930730
  5. LANSOPRAZOLE [Concomitant]
     Indication: PROPHYLAXIS
     Dosage: 30MG PER DAY
     Route: 048
     Dates: start: 19990803
  6. VIOXX [Concomitant]
     Indication: ANKYLOSING SPONDYLITIS
     Dosage: 25MG PER DAY
     Route: 048
     Dates: start: 19990903
  7. UNKNOWN DRUG [Concomitant]
     Indication: ANKYLOSING SPONDYLITIS
     Dosage: 25MG PER DAY
     Route: 048
     Dates: start: 20020909
  8. ERYTHROMYCIN [Concomitant]
     Indication: DRUG USE FOR UNKNOWN INDICATION
     Dosage: 1G PER DAY
     Route: 048
     Dates: start: 20020828

REACTIONS (4)
  - ABDOMINAL PAIN [None]
  - CROHN'S DISEASE [None]
  - DIARRHOEA [None]
  - VOMITING [None]
